FAERS Safety Report 5034705-9 (Version None)
Quarter: 2006Q2

REPORT INFORMATION
  Report Type: 
  Country: None (occurrence: None)
  Receive Date: 20060621
  Receipt Date: 20060609
  Transmission Date: 20061013
  Serious: Yes (Other)
  Sender: FDA-Public Use
  Company Number: 2006030044

PATIENT
  Age: 45 Year
  Sex: Male
  Weight: 103.4201 kg

DRUGS (2)
  1. VISINE-A [Suspect]
     Indication: DRY EYE
     Dosage: 1 DROP IN EACH EYE ONCE, OPHTHALMIC
     Route: 047
     Dates: start: 20060302, end: 20060302
  2. ESOMEPRAZOLE [Concomitant]

REACTIONS (6)
  - CHEMICAL BURNS OF EYE [None]
  - CONJUNCTIVAL HYPERAEMIA [None]
  - EYE IRRITATION [None]
  - FOREIGN BODY SENSATION IN EYES [None]
  - PHOTOPHOBIA [None]
  - VISUAL ACUITY REDUCED [None]
